FAERS Safety Report 8553870-X (Version None)
Quarter: 2012Q3

REPORT INFORMATION
  Report Type: 
  Country: None (occurrence: None)
  Receive Date: 20120731
  Receipt Date: 20120720
  Transmission Date: 20120928
  Serious: Yes (Hospitalization, Other)
  Sender: FDA-Public Use
  Company Number: US-BAYER-2012-023581

PATIENT
  Age: 49 Year
  Sex: Female

DRUGS (9)
  1. YAZ [Suspect]
     Dosage: UNK
     Dates: start: 20071023, end: 20090709
  2. ATACAND [Concomitant]
     Dosage: UNK
     Dates: start: 20090216
  3. EFFEXOR [Concomitant]
     Dosage: UNK
     Dates: start: 20090216
  4. IBUPROFEN (ADVIL) [Concomitant]
     Dosage: UNK
     Dates: start: 20090406
  5. TUSSIN DM [Concomitant]
     Dosage: UNK
     Dates: start: 20090406
  6. SIMVASTATIN [Concomitant]
     Dosage: UNK
     Dates: start: 20090216
  7. DROSPIRENONE AND ETHINYL ESTRADIOL [Suspect]
     Dosage: UNK
     Dates: start: 20071023, end: 20090709
  8. AMOXICILLIN [Concomitant]
     Dosage: UNK
     Dates: start: 20090406
  9. YASMIN [Suspect]
     Dosage: UNK
     Dates: start: 20071023, end: 20090709

REACTIONS (7)
  - EMOTIONAL DISTRESS [None]
  - INTRACRANIAL VENOUS SINUS THROMBOSIS [None]
  - DEEP VEIN THROMBOSIS [None]
  - INJURY [None]
  - GENERAL PHYSICAL HEALTH DETERIORATION [None]
  - PAIN [None]
  - ANXIETY [None]
